FAERS Safety Report 4754731-4 (Version None)
Quarter: 2005Q3

REPORT INFORMATION
  Report Type: 
  Country: None (occurrence: None)
  Receive Date: 20050825
  Receipt Date: 20050825
  Transmission Date: 20060218
  Serious: No
  Sender: FDA-Public Use
  Company Number: None

PATIENT
  Sex: Female
  Weight: 41.2773 kg

DRUGS (1)
  1. ISONIAZID [Suspect]
     Indication: TUBERCULOSIS
     Dosage: 300 MG   ONCE DAILY   PO
     Route: 048
     Dates: start: 20050411, end: 20050809

REACTIONS (2)
  - JAUNDICE [None]
  - OCULAR ICTERUS [None]
